FAERS Safety Report 20030086 (Version 1)
Quarter: 2021Q4

REPORT INFORMATION
  Report Type: Spontaneous
  Country: DE (occurrence: DE)
  Receive Date: 20211103
  Receipt Date: 20211103
  Transmission Date: 20220303
  Serious: Yes (Hospitalization)
  Sender: FDA-Public Use
  Company Number: DE-ADRED-05854-01

PATIENT
  Age: 59 Year
  Sex: Male
  Weight: 87 kg

DRUGS (4)
  1. METOPROLOL [Suspect]
     Active Substance: METOPROLOL
     Indication: Product used for unknown indication
     Dosage: 95 MILLIGRAM (1-0-1-0)
     Route: 048
  2. AMLODIPINE [Suspect]
     Active Substance: AMLODIPINE BESYLATE
     Indication: Product used for unknown indication
     Dosage: 5 MILLIGRAM (0-0-1-0)
     Route: 048
  3. MIRTAZAPINE [Suspect]
     Active Substance: MIRTAZAPINE
     Indication: Product used for unknown indication
     Dosage: 30 MILLIGRAM (1-0-1-0)
     Route: 048
  4. ALPRAZOLAM [Suspect]
     Active Substance: ALPRAZOLAM
     Indication: Product used for unknown indication
     Dosage: 1 MILLIGRAM (0-0-0-1)
     Route: 048

REACTIONS (5)
  - Labelled drug-drug interaction medication error [Unknown]
  - Product prescribing error [Unknown]
  - Dyspnoea [Unknown]
  - Product monitoring error [Unknown]
  - Fall [Unknown]

NARRATIVE: CASE EVENT DATE: 20200720
